FAERS Safety Report 21191959 (Version 1)
Quarter: 2022Q3

REPORT INFORMATION
  Report Type: Report from Study
  Country: US (occurrence: US)
  Receive Date: 20220809
  Receipt Date: 20220809
  Transmission Date: 20221027
  Serious: No
  Sender: FDA-Public Use
  Company Number: US-SUNOVION-2022SUN002388

PATIENT
  Age: 68 Year
  Sex: Male

DRUGS (1)
  1. KYNMOBI [Suspect]
     Active Substance: APOMORPHINE HYDROCHLORIDE
     Dosage: 15 MG
     Route: 060
     Dates: start: 20220722

REACTIONS (4)
  - Pallor [Unknown]
  - Blood pressure decreased [Unknown]
  - Hyperhidrosis [Unknown]
  - Vomiting [Unknown]

NARRATIVE: CASE EVENT DATE: 20220804
